FAERS Safety Report 25925513 (Version 1)
Quarter: 2025Q4

REPORT INFORMATION
  Report Type: Spontaneous
  Country: US (occurrence: None)
  Receive Date: 20251014
  Receipt Date: 20251014
  Transmission Date: 20260117
  Serious: No
  Sender: FDA-CTU
  Company Number: None

PATIENT
  Age: 26 Year
  Sex: Female
  Weight: 64 kg

DRUGS (3)
  1. APRETUDE [Suspect]
     Active Substance: CABOTEGRAVIR
     Indication: Prophylaxis against HIV infection
     Dosage: OTHER FREQUENCY : INJECT 3ML Q MONTH FOR FIRST 2 DOSES;?
     Route: 030
     Dates: start: 20250724, end: 20250828
  2. METRONIDAZOLE [Concomitant]
     Active Substance: METRONIDAZOLE
  3. OLOPATADINE [Concomitant]
     Active Substance: OLOPATADINE

REACTIONS (4)
  - Injection related reaction [None]
  - Gastrointestinal pain [None]
  - Vomiting [None]
  - Urticaria [None]

NARRATIVE: CASE EVENT DATE: 20250724
